FAERS Safety Report 21666584 (Version 1)
Quarter: 2022Q4

REPORT INFORMATION
  Report Type: Report from Study
  Country: US (occurrence: US)
  Receive Date: 20221201
  Receipt Date: 20221201
  Transmission Date: 20230112
  Serious: No
  Sender: FDA-Public Use
  Company Number: US-ABBVIE-4187086

PATIENT
  Sex: Female

DRUGS (1)
  1. HUMIRA [Suspect]
     Active Substance: ADALIMUMAB
     Indication: Hidradenitis
     Dosage: CITRATE FREE
     Route: 058

REACTIONS (8)
  - Injection site rash [Recovered/Resolved]
  - Headache [Recovering/Resolving]
  - Nausea [Recovered/Resolved]
  - Myalgia [Recovering/Resolving]
  - Sinus pain [Recovering/Resolving]
  - Rash erythematous [Recovered/Resolved]
  - Vomiting [Recovered/Resolved]
  - Sinus congestion [Recovering/Resolving]
